FAERS Safety Report 6434769-1 (Version None)
Quarter: 2009Q4

REPORT INFORMATION
  Report Type: 
  Country: None (occurrence: None)
  Receive Date: 20091110
  Receipt Date: 20091029
  Transmission Date: 20100525
  Serious: Yes (Hospitalization)
  Sender: FDA-Public Use
  Company Number: FR-PFIZER INC-2009291016

PATIENT
  Age: 71 Year
  Sex: Female
  Weight: 69 kg

DRUGS (7)
  1. SUTENT [Suspect]
     Indication: RENAL CELL CARCINOMA
     Dosage: UNK
     Dates: start: 20090602
  2. BEVACIZUMAB [Suspect]
     Indication: RENAL CELL CARCINOMA
     Dosage: EVERY OTHER WEEK
     Route: 042
     Dates: start: 20090217, end: 20090519
  3. INTERFERON ALFA [Suspect]
     Indication: RENAL CELL CARCINOMA
     Dosage: 3/WEEK
     Route: 058
  4. ZOFENIL [Concomitant]
     Indication: HYPERTENSION
     Dosage: UNK
     Dates: start: 20000101
  5. LEVOTHYROXINE SODIUM [Concomitant]
     Indication: HYPERTHYROIDISM
     Dosage: UNK
  6. PARACETAMOL [Concomitant]
     Indication: HEADACHE
     Dosage: UNK
     Dates: start: 20090401
  7. CALCIPRAT [Concomitant]
     Indication: OSTEOPOROSIS
     Dosage: UNK
     Dates: start: 19980101

REACTIONS (1)
  - SYNCOPE [None]
